FAERS Safety Report 7941072-7 (Version None)
Quarter: 2011Q4

REPORT INFORMATION
  Report Type: 
  Country: None (occurrence: None)
  Receive Date: 20111108
  Receipt Date: 20110810
  Transmission Date: 20120403
  Serious: Yes (Other)
  Sender: FDA-Public Use
  Company Number: PHEH2011US01155

PATIENT
  Age: 57 Year
  Sex: Female

DRUGS (2)
  1. LOVENOX [Concomitant]
  2. ZOMETA [Suspect]

REACTIONS (1)
  - OSTEONECROSIS [None]
